FAERS Safety Report 12661743 (Version 2)
Quarter: 2016Q3

REPORT INFORMATION
  Report Type: Other
  Country: IT (occurrence: IT)
  Receive Date: 20160817
  Receipt Date: 20160912
  Transmission Date: 20161109
  Serious: Yes (Hospitalization)
  Sender: FDA-Public Use
  Company Number: IT-UNITED THERAPEUTICS-UNT-2016-012819

PATIENT
  Age: 55 Year
  Sex: Female

DRUGS (1)
  1. REMODULIN [Suspect]
     Active Substance: TREPROSTINIL
     Indication: PULMONARY ARTERIAL HYPERTENSION
     Dosage: 0.018 ML/H
     Route: 058
     Dates: start: 2015

REACTIONS (8)
  - Panic attack [Unknown]
  - Amnesia [Unknown]
  - Viral infection [Unknown]
  - Cardiac failure [Unknown]
  - Oedema peripheral [Unknown]
  - Weight increased [Unknown]
  - Pericardial effusion [Unknown]
  - Pulmonary oedema [Unknown]

NARRATIVE: CASE EVENT DATE: 2016
